FAERS Safety Report 21509868 (Version 1)
Quarter: 2022Q4

REPORT INFORMATION
  Report Type: Report from Study
  Country: ES (occurrence: ES)
  Receive Date: 20221026
  Receipt Date: 20221026
  Transmission Date: 20230113
  Serious: Yes (Other)
  Sender: FDA-Public Use
  Company Number: ES-JAZZ-2022-ES-004440

PATIENT
  Age: 75 Year

DRUGS (7)
  1. DEFITELIO [Suspect]
     Active Substance: DEFIBROTIDE SODIUM
     Indication: Prophylaxis
  2. GEMTUZUMAB OZOGAMICIN [Concomitant]
     Active Substance: GEMTUZUMAB OZOGAMICIN
     Indication: Product used for unknown indication
  3. HEPARIN SODIUM [Concomitant]
     Active Substance: HEPARIN SODIUM
  4. PROSTAGLANDIN E1 [Concomitant]
     Active Substance: ALPROSTADIL
  5. URSODIOL [Concomitant]
     Active Substance: URSODIOL
  6. ACETYLCYSTEINE [Concomitant]
     Active Substance: ACETYLCYSTEINE
  7. METHYLPREDNISOLONE [Concomitant]
     Active Substance: METHYLPREDNISOLONE

REACTIONS (2)
  - Venoocclusive disease [Unknown]
  - Off label use [Unknown]
